FAERS Safety Report 14546916 (Version 4)
Quarter: 2018Q2

REPORT INFORMATION
  Report Type: Spontaneous
  Country: US (occurrence: US)
  Receive Date: 20180219
  Receipt Date: 20180406
  Transmission Date: 20180711
  Serious: Yes (Hospitalization, Other)
  Sender: FDA-Public Use
  Company Number: US-PFIZER INC-2018065645

PATIENT
  Age: 70 Year
  Sex: Female
  Weight: 76.19 kg

DRUGS (4)
  1. IBRANCE [Suspect]
     Active Substance: PALBOCICLIB
     Dosage: 125 MG, CYCLIC [DAY 1-21 Q 28DAYS]
     Route: 048
     Dates: start: 20170802, end: 20180322
  2. FASLODEX [Concomitant]
     Active Substance: FULVESTRANT
     Dosage: UNK
     Dates: end: 20180322
  3. IBRANCE [Suspect]
     Active Substance: PALBOCICLIB
     Indication: BREAST CANCER METASTATIC
     Dosage: 125 MG, CYCLIC (D1-21 Q28 DAYS)
     Route: 048
     Dates: start: 20170702
  4. IBRANCE [Suspect]
     Active Substance: PALBOCICLIB
     Dosage: 125 MG, CYCLIC [DAY 1-21 Q 28DAYS]
     Route: 048
     Dates: start: 20170727

REACTIONS (6)
  - Pneumonia [Unknown]
  - Malaise [Unknown]
  - Neoplasm progression [Unknown]
  - Abdominal discomfort [Unknown]
  - Influenza [Unknown]
  - Neuropathy peripheral [Unknown]
